FAERS Safety Report 9940725 (Version 1)
Quarter: 2014Q1

REPORT INFORMATION
  Report Type: Spontaneous
  Country: US (occurrence: US)
  Receive Date: 20140303
  Receipt Date: 20140303
  Transmission Date: 20141002
  Serious: No
  Sender: FDA-Public Use
  Company Number: US-PFIZER INC-2014059082

PATIENT
  Age: 57 Year
  Sex: Female

DRUGS (1)
  1. XELJANZ [Suspect]
     Dosage: 5 MG, 2X/DAY
     Dates: start: 20140110, end: 20140225

REACTIONS (5)
  - Headache [Recovering/Resolving]
  - Depression [Unknown]
  - Fatigue [Unknown]
  - Palpitations [Unknown]
  - Extrasystoles [Unknown]
